FAERS Safety Report 5933927-X (Version None)
Quarter: 2008Q4

REPORT INFORMATION
  Report Type: 
  Country: None (occurrence: None)
  Receive Date: 20081029
  Receipt Date: 20081022
  Transmission Date: 20090506
  Serious: Yes (Life-Threatening, Hospitalization)
  Sender: FDA-Public Use
  Company Number: PL-ABBOTT-08P-129-0479603-00

PATIENT
  Sex: Female

DRUGS (12)
  1. DEPAKENE [Suspect]
     Indication: EPILEPSY
     Route: 048
     Dates: start: 20080301, end: 20080904
  2. DEPAKENE [Suspect]
     Indication: PERSONALITY DISORDER
  3. DEPAKENE [Suspect]
     Indication: ABNORMAL BEHAVIOUR
  4. DEPAKENE [Suspect]
     Indication: BRAIN INJURY
  5. RISPERIDONE [Concomitant]
     Indication: EPILEPSY
     Route: 065
  6. RISPERIDONE [Concomitant]
     Indication: ABNORMAL BEHAVIOUR
  7. RISPERIDONE [Concomitant]
     Indication: PERSONALITY DISORDER
  8. RISPERIDONE [Concomitant]
     Indication: BRAIN INJURY
  9. TOPIRAMATE [Concomitant]
     Indication: EPILEPSY
     Route: 065
  10. TOPIRAMATE [Concomitant]
     Indication: PERSONALITY DISORDER
  11. TOPIRAMATE [Concomitant]
     Indication: ABNORMAL BEHAVIOUR
  12. TOPIRAMATE [Concomitant]
     Indication: BRAIN INJURY

REACTIONS (8)
  - BLOOD PRESSURE DECREASED [None]
  - FAECALOMA [None]
  - GENERAL PHYSICAL HEALTH DETERIORATION [None]
  - HYPERHIDROSIS [None]
  - PALLOR [None]
  - PANCREATITIS ACUTE [None]
  - TACHYCARDIA [None]
  - TACHYPNOEA [None]
